FAERS Safety Report 5134788-1 (Version None)
Quarter: 2006Q4

REPORT INFORMATION
  Report Type: 
  Country: None (occurrence: None)
  Receive Date: 20061025
  Receipt Date: 20061019
  Transmission Date: 20070319
  Serious: Yes (Hospitalization)
  Sender: FDA-Public Use
  Company Number: US-MERCK-0610USA11842

PATIENT
  Age: 36 Year
  Sex: Female

DRUGS (3)
  1. CANCIDAS [Suspect]
     Indication: VAGINAL CANDIDIASIS
     Route: 042
  2. CANCIDAS [Suspect]
     Route: 042
  3. ANIDULAFUNGIN [Concomitant]
     Route: 065

REACTIONS (2)
  - DRUG INEFFECTIVE [None]
  - VAGINAL CANDIDIASIS [None]
